FAERS Safety Report 7135313-6 (Version None)
Quarter: 2010Q4

REPORT INFORMATION
  Report Type: 
  Country: None (occurrence: None)
  Receive Date: 20101203
  Receipt Date: 20101125
  Transmission Date: 20110411
  Serious: Yes (Other)
  Sender: FDA-Public Use
  Company Number: B0686255A

PATIENT
  Age: 10 Year
  Sex: Male

DRUGS (4)
  1. COMBIVIR [Suspect]
     Indication: HIV INFECTION
     Route: 048
  2. VIRAMUNE [Concomitant]
     Indication: HIV INFECTION
     Route: 048
  3. TIAPRIDAL [Concomitant]
     Route: 065
  4. TERCIAN [Concomitant]
     Route: 065

REACTIONS (5)
  - AGGRESSION [None]
  - ANXIETY [None]
  - CONDITION AGGRAVATED [None]
  - CONDUCT DISORDER [None]
  - POSTURE ABNORMAL [None]
